FAERS Safety Report 10205974 (Version 1)
Quarter: 2014Q2

REPORT INFORMATION
  Report Type: Spontaneous
  Country: US (occurrence: None)
  Receive Date: 20140527
  Receipt Date: 20140527
  Transmission Date: 20141212
  Serious: No
  Sender: FDA-Public Use
  Company Number: None

PATIENT
  Age: 49 Year
  Sex: Female
  Weight: 54.43 kg

DRUGS (1)
  1. DIFLUCAN [Suspect]
     Indication: FUNGAL INFECTION
     Dosage: 1 ONE PILL ONLY TAKEN BY MOUTH
     Route: 048

REACTIONS (9)
  - Pruritus [None]
  - Butterfly rash [None]
  - Swelling [None]
  - Inflammation [None]
  - Skin exfoliation [None]
  - Skin fissures [None]
  - Scab [None]
  - Lip blister [None]
  - Rash erythematous [None]
